FAERS Safety Report 8775225 (Version 1)
Quarter: 2012Q4

REPORT INFORMATION
  Report Type: 
  Country: US (occurrence: US)
  Receive Date: 20120910
  Receipt Date: 20120910
  Transmission Date: 20130627
  Serious: Yes (Other)
  Sender: FDA-Public Use
  Company Number: US-AMGEN-USASP2012056368

PATIENT
  Age: 71 Year
  Sex: Female

DRUGS (3)
  1. PROLIA [Suspect]
     Indication: OSTEOPOROSIS POSTMENOPAUSAL
     Dosage: UNK
     Dates: start: 201107
  2. HUMIRA [Concomitant]
  3. METHOTREXATE /00113802/ [Concomitant]

REACTIONS (5)
  - Blindness unilateral [Not Recovered/Not Resolved]
  - Tooth disorder [Unknown]
  - Pain in jaw [Not Recovered/Not Resolved]
  - Tooth extraction [Unknown]
  - Corneal disorder [Unknown]
